FAERS Safety Report 14953833 (Version 2)
Quarter: 2018Q2

REPORT INFORMATION
  Report Type: Report from Study
  Country: BR (occurrence: BR)
  Receive Date: 20180530
  Receipt Date: 20180612
  Transmission Date: 20180711
  Serious: Yes (Other)
  Sender: FDA-Public Use
  Company Number: PHHY2018BR047926

PATIENT
  Age: 60 Year
  Sex: Female
  Weight: 41.5 kg

DRUGS (2)
  1. AFINITOR [Suspect]
     Active Substance: EVEROLIMUS
     Indication: NEUROENDOCRINE TUMOUR
     Dosage: 10 MG, UNK
     Route: 048
  2. SANDOSTATIN LAR DEPOT [Suspect]
     Active Substance: OCTREOTIDE ACETATE
     Indication: NEUROENDOCRINE TUMOUR
     Dosage: 20 MG, QMO
     Route: 030
     Dates: start: 20121128

REACTIONS (10)
  - Cataract [Unknown]
  - Dysphonia [Unknown]
  - Viral infection [Unknown]
  - Hypertension [Recovered/Resolved]
  - Influenza [Unknown]
  - Fatigue [Recovering/Resolving]
  - Speech disorder [Unknown]
  - Malaise [Not Recovered/Not Resolved]
  - Visual impairment [Not Recovered/Not Resolved]
  - Hunger [Recovering/Resolving]

NARRATIVE: CASE EVENT DATE: 20180312
